FAERS Safety Report 25641743 (Version 3)
Quarter: 2025Q4

REPORT INFORMATION
  Report Type: Spontaneous
  Country: US (occurrence: US)
  Receive Date: 20250804
  Receipt Date: 20251120
  Transmission Date: 20260118
  Serious: No
  Sender: SERVIER
  Company Number: US-SERVIER-S25007885

PATIENT

DRUGS (1)
  1. VORANIGO [Suspect]
     Active Substance: VORASIDENIB
     Indication: Oligodendroglioma
     Dosage: 40 MG, QD
     Route: 048
     Dates: start: 20250405

REACTIONS (5)
  - Headache [Recovered/Resolved]
  - Fatigue [Unknown]
  - Abdominal discomfort [Not Recovered/Not Resolved]
  - Nausea [Unknown]
  - Hepatic enzyme increased [Recovered/Resolved]

NARRATIVE: CASE EVENT DATE: 20250101
